FAERS Safety Report 25538606 (Version 1)
Quarter: 2025Q3

REPORT INFORMATION
  Report Type: Spontaneous
  Country: EU (occurrence: EU)
  Receive Date: 20250710
  Receipt Date: 20250710
  Transmission Date: 20251021
  Serious: Yes (Hospitalization)
  Sender: GALPHARM INTERNATIONAL
  Company Number: EU-MLMSERVICE-20250626-PI555427-00227-1

PATIENT
  Age: 8 Year
  Sex: Female

DRUGS (4)
  1. MOMETASONE FUROATE [Suspect]
     Active Substance: MOMETASONE FUROATE
     Indication: Nasal obstruction
     Route: 045
  2. MOMETASONE FUROATE [Suspect]
     Active Substance: MOMETASONE FUROATE
     Indication: Obstructive sleep apnoea syndrome
  3. BETAMETHASONE [Suspect]
     Active Substance: BETAMETHASONE
     Indication: Nasal obstruction
     Route: 045
  4. BETAMETHASONE [Suspect]
     Active Substance: BETAMETHASONE
     Indication: Obstructive sleep apnoea syndrome

REACTIONS (4)
  - Pseudo Cushing^s syndrome [Recovered/Resolved]
  - Adrenal insufficiency [Recovered/Resolved]
  - Vitamin D deficiency [Unknown]
  - Hyperparathyroidism [Unknown]
